FAERS Safety Report 14329225 (Version 2)
Quarter: 2018Q1

REPORT INFORMATION
  Report Type: Spontaneous
  Country: JP (occurrence: JP)
  Receive Date: 20171227
  Receipt Date: 20180103
  Transmission Date: 20180509
  Serious: Yes (Hospitalization)
  Sender: FDA-Public Use
  Company Number: JP-ALLERGAN-1766602US

PATIENT
  Age: 21 Month
  Sex: Male

DRUGS (2)
  1. BOTULINUM TOXIN TYPE A - BP [Suspect]
     Active Substance: BOTULINUM TOXIN TYPE A
     Indication: MUSCLE SPASMS
     Dosage: 50 UNITS, SINGLE
     Route: 030
  2. BOTULINUM TOXIN TYPE A - BP [Suspect]
     Active Substance: BOTULINUM TOXIN TYPE A
     Indication: TALIPES
     Dosage: 20 UNITS, SINGLE
     Route: 030
     Dates: start: 20171023, end: 20171023

REACTIONS (6)
  - Nausea [Recovered/Resolved]
  - Diarrhoea [Recovered/Resolved]
  - Intestinal dilatation [Recovering/Resolving]
  - Drug administered to patient of inappropriate age [Unknown]
  - Abdominal distension [Recovered/Resolved]
  - Gastroenteritis [Recovered/Resolved]

NARRATIVE: CASE EVENT DATE: 20171025
